FAERS Safety Report 17092870 (Version 2)
Quarter: 2019Q4

REPORT INFORMATION
  Report Type: Report from Study
  Country: US (occurrence: US)
  Receive Date: 20191129
  Receipt Date: 20191216
  Transmission Date: 20200122
  Serious: Yes (Hospitalization, Other)
  Sender: FDA-Public Use
  Company Number: US-ASTELLAS-2018US044503

PATIENT
  Age: 56 Year
  Sex: Female
  Weight: 50 kg

DRUGS (14)
  1. AZITHROMYCIN ANHYDROUS. [Concomitant]
     Active Substance: AZITHROMYCIN ANHYDROUS
     Indication: MYCOBACTERIUM AVIUM COMPLEX INFECTION
     Route: 048
     Dates: start: 20180606
  2. ACETAMINOPHEN. [Concomitant]
     Active Substance: ACETAMINOPHEN
     Indication: HEADACHE
     Route: 048
     Dates: start: 20171017
  3. ISAVUCONAZOLE [Suspect]
     Active Substance: ISAVUCONAZOLE
     Route: 048
     Dates: start: 20181002, end: 20190818
  4. ISAVUCONAZOLE [Suspect]
     Active Substance: ISAVUCONAZOLE
     Indication: ANTIFUNGAL TREATMENT
     Route: 048
     Dates: start: 20180930, end: 20181002
  5. OXYCODONE [Concomitant]
     Active Substance: OXYCODONE
     Indication: PLEURITIC PAIN
     Route: 048
     Dates: start: 20170914
  6. CALCIUM + VITAMIN D                /01483701/ [Concomitant]
     Active Substance: CALCIUM\VITAMIN D
     Indication: VITAMIN D DEFICIENCY
     Route: 048
     Dates: start: 20151106
  7. MORPHINE [Concomitant]
     Active Substance: MORPHINE
     Indication: PLEURITIC PAIN
     Route: 048
     Dates: start: 20170413
  8. FLUTICASONE. [Concomitant]
     Active Substance: FLUTICASONE
     Indication: CHRONIC SINUSITIS
     Dosage: 50 ?G, ONCE DAILY, ONE SASAL SPRAY
     Route: 045
     Dates: start: 20150505
  9. PANCRELIPASE. [Concomitant]
     Active Substance: PANCRELIPASE
     Indication: PANCREATIC FAILURE
     Dosage: 3 DF, THRICE DAILY WITH MEAL
     Route: 048
     Dates: start: 20171018
  10. PANTOPRAZOLE [Concomitant]
     Active Substance: PANTOPRAZOLE
     Indication: GASTROOESOPHAGEAL REFLUX DISEASE
     Route: 048
     Dates: start: 20170915
  11. DIPHENHYDRAMINE. [Concomitant]
     Active Substance: DIPHENHYDRAMINE
     Indication: PRURITUS
     Route: 048
     Dates: start: 20170926
  12. AMITRIPTYLINE [Concomitant]
     Active Substance: AMITRIPTYLINE
     Indication: MIGRAINE
     Route: 048
     Dates: start: 20170914
  13. CETIRIZINE [Concomitant]
     Active Substance: CETIRIZINE HYDROCHLORIDE
     Indication: CHRONIC SINUSITIS
     Route: 048
     Dates: start: 20140708, end: 20191118
  14. MOXIFLOXACIN. [Concomitant]
     Active Substance: MOXIFLOXACIN
     Indication: MYCOBACTERIUM AVIUM COMPLEX INFECTION
     Route: 048
     Dates: start: 20190404

REACTIONS (3)
  - Nausea [Recovered/Resolved]
  - Hypertension [Recovered/Resolved]
  - Burning mouth syndrome [Recovered/Resolved]

NARRATIVE: CASE EVENT DATE: 20181001
